FAERS Safety Report 14176714 (Version 1)
Quarter: 2017Q4

REPORT INFORMATION
  Report Type: Spontaneous
  Country: US (occurrence: None)
  Receive Date: 20171110
  Receipt Date: 20171110
  Transmission Date: 20180321
  Serious: Yes (Hospitalization)
  Sender: FDA-Public Use
  Company Number: None

PATIENT
  Age: 8 Year
  Sex: Male
  Weight: 34.6 kg

DRUGS (5)
  1. VINCRISTINE SULFATE. [Suspect]
     Active Substance: VINCRISTINE SULFATE
     Dates: end: 20171106
  2. CYTARABINE. [Suspect]
     Active Substance: CYTARABINE
     Dates: end: 20171102
  3. ONCASPAR [Suspect]
     Active Substance: PEGASPARGASE
     Dates: end: 20171106
  4. MERCAPTOPURINE. [Suspect]
     Active Substance: MERCAPTOPURINE
     Dates: end: 20171106
  5. CYCLOPHOSPHAMIDE. [Suspect]
     Active Substance: CYCLOPHOSPHAMIDE
     Dates: end: 20171023

REACTIONS (2)
  - Infusion related reaction [None]
  - Hypersensitivity [None]

NARRATIVE: CASE EVENT DATE: 20171106
